FAERS Safety Report 9203086 (Version 1)
Quarter: 2013Q1

REPORT INFORMATION
  Report Type: Spontaneous
  Country: US (occurrence: None)
  Receive Date: 20120709
  Receipt Date: 20120709
  Transmission Date: 20140127
  Serious: Yes (Other)
  Sender: FDA-Public Use
  Company Number: PHHY2010US59345

PATIENT
  Age: 7 Year
  Sex: Male

DRUGS (3)
  1. GLEEVEC (IMATINIB) UNKNOWN [Suspect]
     Indication: CHRONIC MYELOID LEUKAEMIA
     Route: 048
     Dates: start: 200708, end: 201008
  2. ZOFRAN (ODANSETRON HYDROCHLORIDE) [Concomitant]
  3. MUTIVITAMINS (VITAMINS NOS) [Concomitant]

REACTIONS (4)
  - Aplastic anaemia [None]
  - Bone marrow failure [None]
  - Aspartate aminotransferase increased [None]
  - Blood lactate dehydrogenase increased [None]
